FAERS Safety Report 9813010 (Version 1)
Quarter: 2014Q1

REPORT INFORMATION
  Report Type: Report from Study
  Country: US (occurrence: US)
  Receive Date: 20140113
  Receipt Date: 20140113
  Transmission Date: 20141002
  Serious: Yes (Other)
  Sender: FDA-Public Use
  Company Number: US-ASTELLAS-2014US000280

PATIENT
  Sex: 0

DRUGS (2)
  1. ERLOTINIB TABLET [Suspect]
     Indication: CHOLANGIOCARCINOMA
     Dosage: 150MG DAILY ON DAYS 1-28
     Route: 048
  2. BEVACIZUMAB [Suspect]
     Indication: CHOLANGIOCARCINOMA
     Dosage: 5 MG/KG, ON DAY 1 AND DAY 15
     Route: 042

REACTIONS (2)
  - Off label use [Unknown]
  - Prothrombin time prolonged [Unknown]
